FAERS Safety Report 11344605 (Version 1)
Quarter: 2015Q3

REPORT INFORMATION
  Report Type: Spontaneous
  Country: CA (occurrence: CA)
  Receive Date: 20150806
  Receipt Date: 20150806
  Transmission Date: 20151125
  Serious: Yes (Other)
  Sender: FDA-Public Use
  Company Number: CA-TEVA-584063ACC

PATIENT
  Age: 64 Year
  Sex: Male

DRUGS (7)
  1. NIFEDIPINE. [Concomitant]
     Active Substance: NIFEDIPINE
     Route: 065
  2. CIALIS [Concomitant]
     Active Substance: TADALAFIL
     Route: 065
  3. CANDESARTAN CILEXETIL. [Concomitant]
     Active Substance: CANDESARTAN CILEXETIL
     Route: 065
  4. LIPIDIL EZ [Concomitant]
     Active Substance: FENOFIBRATE
     Route: 065
  5. RATIO-TAMSULOSIN [Suspect]
     Active Substance: TAMSULOSIN
     Indication: BENIGN PROSTATIC HYPERPLASIA
     Route: 048
  6. ARIMIDEX TAB 1MG [Concomitant]
     Route: 065
  7. ANDROGEL [Concomitant]
     Active Substance: TESTOSTERONE
     Route: 065

REACTIONS (1)
  - Rheumatoid arthritis [Recovered/Resolved]
